FAERS Safety Report 13385864 (Version 1)
Quarter: 2017Q1

REPORT INFORMATION
  Report Type: Spontaneous
  Country: US (occurrence: US)
  Receive Date: 20170330
  Receipt Date: 20170330
  Transmission Date: 20170429
  Serious: No
  Sender: FDA-Public Use
  Company Number: US-ELI_LILLY_AND_COMPANY-US201607013869

PATIENT
  Sex: Female
  Weight: 120.3 kg

DRUGS (1)
  1. CYMBALTA [Suspect]
     Active Substance: DULOXETINE HYDROCHLORIDE
     Indication: PRODUCT USED FOR UNKNOWN INDICATION
     Dosage: UNK, UNKNOWN
     Route: 065
     Dates: end: 201411

REACTIONS (21)
  - Nervousness [Unknown]
  - Mood swings [Unknown]
  - Disturbance in attention [Unknown]
  - Dysphoria [Unknown]
  - Dysphemia [Unknown]
  - Paranoia [Unknown]
  - Intentional product misuse [Unknown]
  - Restlessness [Unknown]
  - Stress [Unknown]
  - Hallucination, visual [Unknown]
  - Vertigo [Unknown]
  - Insomnia [Unknown]
  - Affect lability [Unknown]
  - Paraesthesia [Unknown]
  - Dizziness [Unknown]
  - Sleep disorder [Unknown]
  - Crying [Unknown]
  - Confusional state [Unknown]
  - Drug withdrawal syndrome [Unknown]
  - Agitation [Unknown]
  - Anxiety [Unknown]
